FAERS Safety Report 11632150 (Version 1)
Quarter: 2015Q4

REPORT INFORMATION
  Report Type: Spontaneous
  Country: US (occurrence: None)
  Receive Date: 20151014
  Receipt Date: 20151014
  Transmission Date: 20160304
  Serious: Yes (Other)
  Sender: FDA-Public Use
  Company Number: None

PATIENT
  Age: 83 Year
  Sex: Male

DRUGS (1)
  1. TESTOST CYP [Suspect]
     Active Substance: TESTOSTERONE CYPIONATE

REACTIONS (2)
  - Fall [None]
  - Product substitution issue [None]

NARRATIVE: CASE EVENT DATE: 20151012
